FAERS Safety Report 9684285 (Version 2)
Quarter: 2013Q4

REPORT INFORMATION
  Report Type: Report from Study
  Country: JP (occurrence: JP)
  Receive Date: 20131112
  Receipt Date: 20131121
  Transmission Date: 20140711
  Serious: No
  Sender: FDA-Public Use
  Company Number: JP-ROCHE-1302324

PATIENT
  Age: 77 Year
  Sex: Male

DRUGS (1)
  1. GANCICLOVIR [Suspect]
     Indication: ANTIVIRAL PROPHYLAXIS
     Route: 065
     Dates: start: 20080310

REACTIONS (2)
  - Thrombocytopenia [Unknown]
  - Leukopenia [Unknown]
